FAERS Safety Report 8881101 (Version 1)
Quarter: 2012Q4

REPORT INFORMATION
  Report Type: 
  Country: JP (occurrence: JP)
  Receive Date: 20121031
  Receipt Date: 20121031
  Transmission Date: 20130627
  Serious: Yes (Hospitalization)
  Sender: FDA-Public Use
  Company Number: JP-ROCHE-1141813

PATIENT
  Age: 79 Year
  Sex: Male
  Weight: 59 kg

DRUGS (12)
  1. ROCEPHIN [Suspect]
     Indication: PYREXIA
     Route: 041
     Dates: start: 20120908, end: 20120909
  2. ROCEPHIN [Suspect]
     Indication: ARTHRITIS
     Route: 041
     Dates: start: 20120908, end: 20120909
  3. CEFAZOLIN SODIUM [Suspect]
     Indication: PYREXIA
     Route: 041
     Dates: start: 20120904, end: 20120907
  4. CEFAZOLIN SODIUM [Suspect]
     Indication: ARTHRITIS
     Route: 041
     Dates: start: 20120904, end: 20120907
  5. FEBUXOSTAT [Suspect]
     Indication: HYPERURICAEMIA
     Route: 048
     Dates: start: 20120803, end: 20120914
  6. MIRCERA [Concomitant]
     Indication: ANAEMIA
     Route: 042
     Dates: start: 200705
  7. CRESTOR [Concomitant]
     Indication: HYPERCHOLESTEROLAEMIA
     Route: 048
  8. GASTER [Concomitant]
     Indication: PEPTIC ULCER
     Route: 048
  9. ALESION [Concomitant]
     Indication: RASH
     Route: 048
  10. CERCINE [Concomitant]
     Indication: ANXIOLYTIC THERAPY
     Route: 048
  11. LASIX [Concomitant]
     Indication: POLYURIA
     Route: 048
     Dates: start: 20120803
  12. KALIMATE [Concomitant]
     Indication: HYPERKALAEMIA
     Route: 048
     Dates: start: 20120801

REACTIONS (11)
  - Toxic epidermal necrolysis [Recovering/Resolving]
  - Rash [Recovering/Resolving]
  - Large intestine perforation [Recovered/Resolved with Sequelae]
  - Erythema [Unknown]
  - Swelling [Unknown]
  - Pyrexia [Unknown]
  - Arthritis [Unknown]
  - Rash [Recovered/Resolved]
  - Erythema [Recovered/Resolved]
  - Abdominal pain [Unknown]
  - Blood pressure decreased [Unknown]
